FAERS Safety Report 5043563-8 (Version None)
Quarter: 2006Q2

REPORT INFORMATION
  Report Type: 
  Country: None (occurrence: None)
  Receive Date: 20060601
  Receipt Date: 20060223
  Transmission Date: 20061013
  Serious: No
  Sender: FDA-Public Use
  Company Number: 2006PV009144

PATIENT
  Age: 76 Year
  Sex: Male
  Weight: 89.8122 kg

DRUGS (5)
  1. BYETTA [Suspect]
     Indication: DIABETES MELLITUS NON-INSULIN-DEPENDENT
     Dosage: SEE IMAGE
     Route: 058
     Dates: start: 20051201, end: 20060101
  2. BYETTA [Suspect]
     Indication: DIABETES MELLITUS NON-INSULIN-DEPENDENT
     Dosage: SEE IMAGE
     Route: 058
     Dates: start: 20060101
  3. PRANDIN [Concomitant]
  4. PLAVIX [Concomitant]
  5. ASPIRIN [Concomitant]

REACTIONS (6)
  - BLOOD GLUCOSE DECREASED [None]
  - FEELING ABNORMAL [None]
  - HYPERHIDROSIS [None]
  - INJECTION SITE BRUISING [None]
  - INJECTION SITE HAEMORRHAGE [None]
  - INJECTION SITE PAIN [None]
